FAERS Safety Report 9840649 (Version 4)
Quarter: 2014Q3

REPORT INFORMATION
  Report Type: Spontaneous
  Country: US (occurrence: US)
  Receive Date: 20140124
  Receipt Date: 20140718
  Transmission Date: 20150326
  Serious: No
  Sender: FDA-Public Use
  Company Number: US-PFIZER INC-2014022358

PATIENT
  Age: 43 Year
  Sex: Male
  Weight: 79.37 kg

DRUGS (6)
  1. LYRICA [Suspect]
     Active Substance: PREGABALIN
     Indication: PAIN
     Dosage: 50 MG, 2X/DAY
     Dates: start: 2014
  2. BUSPAR [Concomitant]
     Active Substance: BUSPIRONE HYDROCHLORIDE
     Indication: SOCIAL PHOBIA
     Dosage: 15 MG, 2X/DAY
  3. LEXAPRO [Concomitant]
     Active Substance: ESCITALOPRAM OXALATE
     Indication: SOCIAL PHOBIA
     Dosage: 20 MG, DAILY
  4. LYRICA [Suspect]
     Active Substance: PREGABALIN
     Indication: ANXIETY
     Dosage: 50 MG, 2X/DAY
     Dates: end: 201401
  5. LYRICA [Suspect]
     Active Substance: PREGABALIN
     Indication: DEPRESSION
  6. LYRICA [Suspect]
     Active Substance: PREGABALIN
     Indication: POST-TRAUMATIC STRESS DISORDER

REACTIONS (7)
  - Headache [Unknown]
  - Somnolence [Recovered/Resolved]
  - Dizziness [Unknown]
  - Seasonal allergy [Not Recovered/Not Resolved]
  - Back pain [Unknown]
  - Nausea [Unknown]
  - Bedridden [Unknown]

NARRATIVE: CASE EVENT DATE: 2014
